FAERS Safety Report 23507890 (Version 1)
Quarter: 2024Q1

REPORT INFORMATION
  Report Type: Report from Study
  Country: GB (occurrence: GB)
  Receive Date: 20240209
  Receipt Date: 20240209
  Transmission Date: 20240410
  Serious: Yes (Hospitalization)
  Sender: FDA-Public Use
  Company Number: GB-PFIZER INC-PV202400018590

PATIENT

DRUGS (5)
  1. CYTARABINE [Suspect]
     Active Substance: CYTARABINE
     Dosage: 570 MG, 1X/DAY
     Route: 042
     Dates: start: 20231213, end: 20231217
  2. IDARUBICIN HYDROCHLORIDE [Suspect]
     Active Substance: IDARUBICIN HYDROCHLORIDE
     Dosage: 2.3 MG, 1X/DAY
     Route: 042
     Dates: start: 20231214, end: 20231216
  3. FLUDARABINE [Suspect]
     Active Substance: FLUDARABINE PHOSPHATE
     Dosage: 8.5 MG, 1X/DAY
     Route: 042
     Dates: start: 20231212, end: 20231216
  4. AMIKACIN [Concomitant]
     Active Substance: AMIKACIN
     Indication: Infection
     Dosage: 169 MG, 1X/DAY
     Dates: start: 20231221, end: 20231223
  5. AMIKACIN [Concomitant]
     Active Substance: AMIKACIN
     Dosage: 133.5 MG, 1X/DAY
     Dates: start: 20231230, end: 20240104

REACTIONS (2)
  - Neutropenic sepsis [Recovered/Resolved]
  - Mucosal inflammation [Recovered/Resolved]

NARRATIVE: CASE EVENT DATE: 20231230
